FAERS Safety Report 21594706 (Version 1)
Quarter: 2022Q4

REPORT INFORMATION
  Report Type: Spontaneous
  Country: VN (occurrence: VN)
  Receive Date: 20221115
  Receipt Date: 20221115
  Transmission Date: 20230112
  Serious: Yes (Other)
  Sender: FDA-Public Use
  Company Number: VN-ASTELLAS PHARMA EUROPE B.V.-2022US040149

PATIENT
  Age: 49 Year
  Sex: Male

DRUGS (2)
  1. HARNAL [Suspect]
     Active Substance: TAMSULOSIN HYDROCHLORIDE
     Indication: Product used for unknown indication
     Dosage: UNK UNK, UNKNOWN FREQ.
     Route: 065
     Dates: end: 20221107
  2. BUSCOPAN A [Concomitant]
     Dosage: UNK UNK, BID

REACTIONS (5)
  - Pyelonephritis [Unknown]
  - Drug hypersensitivity [Unknown]
  - Dysuria [Unknown]
  - Benign prostatic hyperplasia [Unknown]
  - Renal cyst [Unknown]

NARRATIVE: CASE EVENT DATE: 20221107
